FAERS Safety Report 4577366-5 (Version None)
Quarter: 2005Q1

REPORT INFORMATION
  Report Type: 
  Country: None (occurrence: None)
  Receive Date: 20050210
  Receipt Date: 20050201
  Transmission Date: 20050727
  Serious: Yes (Life-Threatening)
  Sender: FDA-Public Use
  Company Number: GB-GLAXOSMITHKLINE-B0369505A

PATIENT
  Age: 1 Year
  Sex: Male

DRUGS (1)
  1. LAMOTRIGINE [Suspect]
     Indication: EPILEPSY
     Dosage: 450MG PER DAY
     Dates: start: 19990101

REACTIONS (5)
  - DRUG EXPOSURE DURING PREGNANCY [None]
  - ILL-DEFINED DISORDER [None]
  - OESOPHAGEAL ATRESIA [None]
  - RETINAL COLOBOMA [None]
  - TRACHEO-OESOPHAGEAL FISTULA [None]
